FAERS Safety Report 14290462 (Version 2)
Quarter: 2018Q1

REPORT INFORMATION
  Report Type: Report from Study
  Country: US (occurrence: US)
  Receive Date: 20171215
  Receipt Date: 20180116
  Transmission Date: 20180509
  Serious: Yes (Death, Hospitalization)
  Sender: FDA-Public Use
  Company Number: US-JNJFOC-20171218799

PATIENT
  Age: 23 Year
  Sex: Male

DRUGS (17)
  1. KLONOPIN [Concomitant]
     Active Substance: CLONAZEPAM
  2. IRON [Concomitant]
     Active Substance: IRON
  3. MAGNESIUM [Concomitant]
     Active Substance: MAGNESIUM
  4. VALACYCLOVIR [Concomitant]
     Active Substance: VALACYCLOVIR HYDROCHLORIDE
  5. PROTONIX [Concomitant]
     Active Substance: PANTOPRAZOLE SODIUM
  6. GLIPIZIDE. [Concomitant]
     Active Substance: GLIPIZIDE
  7. NORCO [Concomitant]
     Active Substance: ACETAMINOPHEN\HYDROCODONE BITARTRATE
  8. IMBRUVICA [Suspect]
     Active Substance: IBRUTINIB
     Indication: CHRONIC GRAFT VERSUS HOST DISEASE
     Route: 048
     Dates: start: 20171005, end: 2017
  9. DICYCLOMINE [Concomitant]
     Active Substance: DICYCLOMINE HYDROCHLORIDE
  10. URSODIOL. [Concomitant]
     Active Substance: URSODIOL
  11. ENTOCORT [Concomitant]
     Active Substance: BUDESONIDE
  12. OXANDROLONE. [Concomitant]
     Active Substance: OXANDROLONE
  13. DILAUDID [Concomitant]
     Active Substance: HYDROMORPHONE HYDROCHLORIDE
  14. DULOXETINE. [Concomitant]
     Active Substance: DULOXETINE
  15. TACROLIMUS. [Concomitant]
     Active Substance: TACROLIMUS
  16. METHADONE [Concomitant]
     Active Substance: METHADONE HYDROCHLORIDE
  17. PREDNISONE. [Concomitant]
     Active Substance: PREDNISONE

REACTIONS (6)
  - Death [Fatal]
  - Liver injury [Unknown]
  - Incorrect dose administered [Unknown]
  - Off label use [Unknown]
  - Cholelithiasis [Unknown]
  - Gastrointestinal infection [Unknown]

NARRATIVE: CASE EVENT DATE: 20171005
